FAERS Safety Report 9227043 (Version 1)
Quarter: 2013Q2

REPORT INFORMATION
  Report Type: Spontaneous
  Country: DE (occurrence: None)
  Receive Date: 20130410
  Receipt Date: 20130410
  Transmission Date: 20140414
  Serious: Yes (Hospitalization)
  Sender: FDA-Public Use
  Company Number: SP06545

PATIENT
  Age: 50 Year
  Sex: Female

DRUGS (1)
  1. XIFAXAN [Suspect]
     Indication: HEPATIC ENCEPHALOPATHY PROPHYLAXIS
     Dosage: 1200 MG (400 MG, 3 IN 1 D), ORAL
     Route: 048

REACTIONS (8)
  - Hepatic function abnormal [None]
  - Renal impairment [None]
  - Blood bilirubin increased [None]
  - Peritonitis bacterial [None]
  - Pasteurella test positive [None]
  - Blood creatinine increased [None]
  - Blood albumin decreased [None]
  - International normalised ratio increased [None]
